FAERS Safety Report 18537267 (Version 2)
Quarter: 2020Q4

REPORT INFORMATION
  Report Type: Spontaneous
  Country: US (occurrence: US)
  Receive Date: 20201124
  Receipt Date: 20201128
  Transmission Date: 20210114
  Serious: No
  Sender: FDA-Public Use
  Company Number: NVSC2020US304090

PATIENT
  Sex: Male

DRUGS (1)
  1. XIIDRA [Suspect]
     Active Substance: LIFITEGRAST
     Indication: PRODUCT USED FOR UNKNOWN INDICATION
     Dosage: UNK
     Route: 065

REACTIONS (8)
  - Vision blurred [Unknown]
  - Dry mouth [Unknown]
  - Swollen tongue [Unknown]
  - Dehydration [Unknown]
  - Eye irritation [Unknown]
  - Insomnia [Unknown]
  - Dysgeusia [Unknown]
  - Episcleral hyperaemia [Unknown]
